FAERS Safety Report 4331465-1 (Version None)
Quarter: 2004Q1

REPORT INFORMATION
  Report Type: 
  Country: None (occurrence: None)
  Receive Date: 20040329
  Receipt Date: 20040318
  Transmission Date: 20041129
  Serious: Yes (Other)
  Sender: FDA-Public Use
  Company Number: US-JNJFOC-20040304617

PATIENT
  Age: 86 Year
  Sex: Female

DRUGS (1)
  1. RISPERDAL [Suspect]
     Dosage: 1 MG, IN 1 DAY, ORAL
     Route: 048

REACTIONS (1)
  - PLATELET COUNT DECREASED [None]
